FAERS Safety Report 6117036-5 (Version None)
Quarter: 2009Q1

REPORT INFORMATION
  Report Type: 
  Country: None (occurrence: None)
  Receive Date: 20090314
  Receipt Date: 20090105
  Transmission Date: 20090719
  Serious: No
  Sender: FDA-Public Use
  Company Number: US-ABBOTT-09P-163-0495920-00

PATIENT
  Sex: Female
  Weight: 48.578 kg

DRUGS (14)
  1. HUMIRA [Suspect]
     Indication: RHEUMATOID ARTHRITIS
     Route: 058
  2. HUMIRA [Suspect]
     Route: 058
  3. HUMIRA [Suspect]
     Dosage: HUMIRA PEN
  4. METHOTREXATE [Suspect]
     Indication: RHEUMATOID ARTHRITIS
  5. METHOTREXATE [Suspect]
  6. METHOTREXATE [Suspect]
  7. METHOTREXATE [Suspect]
  8. METHOTREXATE [Suspect]
  9. MEDROL [Concomitant]
     Indication: DRUG USE FOR UNKNOWN INDICATION
  10. FOSAMAX [Concomitant]
     Indication: DRUG USE FOR UNKNOWN INDICATION
  11. CALCIUM [Concomitant]
     Indication: DRUG USE FOR UNKNOWN INDICATION
  12. UNNAMED THYROID MEDICATION [Concomitant]
     Indication: HYPOTHYROIDISM
  13. MILK THISTLE [Concomitant]
     Indication: DRUG USE FOR UNKNOWN INDICATION
  14. ESTER C [Concomitant]
     Indication: DRUG USE FOR UNKNOWN INDICATION

REACTIONS (3)
  - DRUG INEFFECTIVE [None]
  - HEPATIC ENZYME INCREASED [None]
  - NAUSEA [None]
